FAERS Safety Report 24584054 (Version 1)
Quarter: 2024Q4

REPORT INFORMATION
  Report Type: Spontaneous
  Country: US (occurrence: None)
  Receive Date: 20241105
  Receipt Date: 20241105
  Transmission Date: 20250115
  Serious: Yes (Hospitalization)
  Sender: Public
  Company Number: None

PATIENT
  Sex: Female

DRUGS (1)
  1. PREVYMIS [Suspect]
     Active Substance: LETERMOVIR
     Indication: Bone marrow transplant
     Dosage: FREQUENCY : DAILY;?
     Route: 048
     Dates: start: 202402

REACTIONS (1)
  - Dyspnoea [None]
